FAERS Safety Report 13726021 (Version 1)
Quarter: 2017Q3

REPORT INFORMATION
  Report Type: Other
  Country: CN (occurrence: CN)
  Receive Date: 20170706
  Receipt Date: 20170706
  Transmission Date: 20171127
  Serious: Yes (Life-Threatening)
  Sender: FDA-Public Use
  Company Number: CN-GEHC-2017CSU001939

PATIENT

DRUGS (1)
  1. OMNIPAQUE [Suspect]
     Active Substance: IOHEXOL
     Indication: PRODUCT USED FOR UNKNOWN INDICATION
     Dosage: 50 ML, SINGLE
     Route: 042
     Dates: start: 20170414, end: 20170414

REACTIONS (6)
  - Rales [Recovering/Resolving]
  - Photosensitivity reaction [Recovering/Resolving]
  - Loss of consciousness [Recovering/Resolving]
  - Rhonchi [Recovering/Resolving]
  - Foaming at mouth [Recovering/Resolving]
  - Urinary incontinence [Recovering/Resolving]

NARRATIVE: CASE EVENT DATE: 20170414
